FAERS Safety Report 8390883-5 (Version None)
Quarter: 2012Q2

REPORT INFORMATION
  Report Type: 
  Country: None (occurrence: None)
  Receive Date: 20120529
  Receipt Date: 20120522
  Transmission Date: 20120825
  Serious: Yes (Hospitalization)
  Sender: FDA-Public Use
  Company Number: US-BAYER-2011-120300

PATIENT
  Age: 49 Year
  Sex: Female
  Weight: 104 kg

DRUGS (17)
  1. SOMA [Concomitant]
     Dosage: 350, QID
     Route: 048
     Dates: start: 20040302, end: 20110122
  2. PROVIGIL [Concomitant]
     Dosage: UNK
     Route: 048
     Dates: start: 20070820, end: 20071118
  3. KLONOPIN [Concomitant]
     Dosage: 1 MG, 2 TABLETS BID
     Route: 048
     Dates: start: 20031201, end: 20110124
  4. EFFEXOR XR [Concomitant]
     Dosage: 150 MG, 4 TABLETS PER DAY
     Route: 048
     Dates: start: 20070318, end: 20080610
  5. PROVIGIL [Concomitant]
     Indication: SLEEP APNOEA SYNDROME
     Dosage: 2 MG, OM
     Route: 048
     Dates: start: 20050324, end: 20080117
  6. AMBIEN CR [Concomitant]
     Dosage: 12.5 MG, HS
     Route: 048
     Dates: start: 20040301, end: 20080709
  7. CELEXA [Concomitant]
     Dosage: 20 MG, UNK
     Route: 048
     Dates: start: 20050901, end: 20080808
  8. PREVACID [Concomitant]
     Dosage: 30 MG, QD
     Route: 048
     Dates: start: 20050909, end: 20080215
  9. DURAGESIC-100 [Concomitant]
     Dosage: 15 ?G/H, EVERY THIRD DAY
     Route: 062
     Dates: start: 20050629, end: 20100329
  10. EFFEXOR [Concomitant]
     Dosage: UNK
     Route: 048
     Dates: start: 20050101
  11. RELAFEN [Concomitant]
     Dosage: 5 MG, QD 2 TABLETS
     Route: 048
     Dates: start: 20040129, end: 20070919
  12. ATENOLOL [Concomitant]
     Dosage: 12.5 MG, UNK
     Route: 048
  13. NORCO [Concomitant]
     Dosage: 10/325
     Route: 048
     Dates: start: 20020116, end: 20110122
  14. BENTYL [Concomitant]
     Dosage: UNK UNK, PRN
     Route: 048
  15. YASMIN [Suspect]
     Indication: MENOPAUSE
     Dosage: UNK
     Dates: start: 20030306, end: 20071229
  16. DOXEPIN [Concomitant]
     Dosage: 100 MG, HS 2 TABLETS
     Dates: start: 20050920, end: 20110124
  17. FERROUS SULFATE TAB [Concomitant]
     Dosage: 325 MG, QD
     Route: 048

REACTIONS (5)
  - PULMONARY EMBOLISM [None]
  - ANXIETY [None]
  - EMOTIONAL DISORDER [None]
  - DEEP VEIN THROMBOSIS [None]
  - PAIN [None]
